FAERS Safety Report 9229986 (Version 1)
Quarter: 2013Q2

REPORT INFORMATION
  Report Type: Spontaneous
  Country: US (occurrence: US)
  Receive Date: 20130415
  Receipt Date: 20130415
  Transmission Date: 20140414
  Serious: Yes (Hospitalization, Other)
  Sender: FDA-Public Use
  Company Number: US-JNJFOC-20130403102

PATIENT
  Sex: Female

DRUGS (1)
  1. RISPERDAL [Suspect]
     Indication: PRODUCT USED FOR UNKNOWN INDICATION
     Route: 065

REACTIONS (15)
  - Dehydration [Unknown]
  - Frequent bowel movements [Unknown]
  - Umbilical hernia [Unknown]
  - Blood glucose fluctuation [Unknown]
  - Pain [Unknown]
  - Tremor [Unknown]
  - Hypotension [Unknown]
  - Palpitations [Unknown]
  - Galactorrhoea [Unknown]
  - Breast enlargement [Unknown]
  - Dyskinesia [Unknown]
  - Abnormal weight gain [Unknown]
  - Abdominal distension [Unknown]
  - Muscle spasms [Unknown]
  - Abdominal pain [Unknown]
